FAERS Safety Report 7006288-5 (Version None)
Quarter: 2010Q3

REPORT INFORMATION
  Report Type: 
  Country: None (occurrence: None)
  Receive Date: 20100921
  Receipt Date: 20100912
  Transmission Date: 20110219
  Serious: No
  Sender: FDA-Public Use
  Company Number: US-PFIZER INC-2010115032

PATIENT
  Sex: Male
  Weight: 86.168 kg

DRUGS (8)
  1. CHANTIX [Suspect]
     Indication: SMOKING CESSATION THERAPY
     Dosage: 0.5 MG, DAILY
     Route: 048
     Dates: start: 20100902
  2. CHANTIX [Suspect]
     Dosage: 1 MG, 2X/DAY
     Route: 048
  3. DEPAKOTE [Concomitant]
     Indication: SCHIZOPHRENIA
     Dosage: 500 MG, DAILY
     Route: 048
  4. DEPAKOTE [Concomitant]
     Indication: MENTAL DISORDER
  5. ZYPREXA [Concomitant]
     Indication: MENTAL DISORDER
     Dosage: 15 MG, DAILY
     Route: 048
  6. CLONAZEPAM [Concomitant]
     Indication: SCHIZOPHRENIA
     Dosage: 1 MG, 2X/DAY
     Route: 048
  7. CLONAZEPAM [Concomitant]
     Indication: MENTAL DISORDER
  8. SIMVASTATIN [Concomitant]
     Indication: BLOOD CHOLESTEROL ABNORMAL
     Dosage: UNK
     Route: 048

REACTIONS (1)
  - CONSTIPATION [None]
